FAERS Safety Report 6173053-0 (Version None)
Quarter: 2009Q2

REPORT INFORMATION
  Report Type: 
  Country: None (occurrence: None)
  Receive Date: 20090428
  Receipt Date: 20090414
  Transmission Date: 20091009
  Serious: Yes (Other)
  Sender: FDA-Public Use
  Company Number: VAL_00258_2009

PATIENT
  Sex: Female

DRUGS (2)
  1. ROCALTROL [Suspect]
     Indication: HYPOCALCAEMIA
     Dosage: 1.5 UG
     Route: 048
     Dates: start: 20080601, end: 20080101
  2. ROCALTROL [Suspect]
     Indication: HYPOCALCAEMIA
     Dosage: 1.5 UG
     Route: 048
     Dates: start: 20080101

REACTIONS (2)
  - HYPOTENSION [None]
  - MYALGIA [None]
